FAERS Safety Report 6857424-2 (Version None)
Quarter: 2010Q3

REPORT INFORMATION
  Report Type: 
  Country: None (occurrence: None)
  Receive Date: 20100719
  Receipt Date: 20080122
  Transmission Date: 20110219
  Serious: Yes (Other)
  Sender: FDA-Public Use
  Company Number: US-PFIZER INC-2008009028

PATIENT

DRUGS (1)
  1. CHANTIX [Suspect]

REACTIONS (6)
  - ABNORMAL DREAMS [None]
  - ANXIETY [None]
  - CEREBROVASCULAR ACCIDENT [None]
  - INSOMNIA [None]
  - NAUSEA [None]
  - UNEVALUABLE EVENT [None]
